FAERS Safety Report 7996615-4 (Version None)
Quarter: 2011Q4

REPORT INFORMATION
  Report Type: 
  Country: None (occurrence: None)
  Receive Date: 20111221
  Receipt Date: 20111216
  Transmission Date: 20120403
  Serious: Yes (Hospitalization)
  Sender: FDA-Public Use
  Company Number: ES-SP-2011-10449

PATIENT
  Sex: Male

DRUGS (1)
  1. IMMUCYST [Suspect]
     Indication: BLADDER CANCER
     Route: 043
     Dates: start: 20100624, end: 20100720

REACTIONS (10)
  - HEPATITIS [None]
  - CHILLS [None]
  - DYSURIA [None]
  - URETHRAL HAEMORRHAGE [None]
  - PYREXIA [None]
  - PAIN [None]
  - BOVINE TUBERCULOSIS [None]
  - PNEUMONITIS [None]
  - PRODUCTIVE COUGH [None]
  - HAEMATURIA [None]
